FAERS Safety Report 6312153-9 (Version None)
Quarter: 2009Q3

REPORT INFORMATION
  Report Type: 
  Country: None (occurrence: None)
  Receive Date: 20090817
  Receipt Date: 20090811
  Transmission Date: 20100115
  Serious: Yes (Death)
  Sender: FDA-Public Use
  Company Number: US-CELGENEUS-163-20785-09070137

PATIENT
  Sex: Male

DRUGS (3)
  1. THALOMID [Suspect]
     Indication: DRUG USE FOR UNKNOWN INDICATION
     Route: 048
     Dates: start: 20080201
  2. THALOMID [Suspect]
     Route: 048
     Dates: start: 20080101, end: 20080201
  3. THALOMID [Suspect]
     Route: 048
     Dates: start: 20090501

REACTIONS (2)
  - ASTHENIA [None]
  - CARDIAC DISORDER [None]
